FAERS Safety Report 24186397 (Version 1)
Quarter: 2024Q3

REPORT INFORMATION
  Report Type: Report from Study
  Country: US (occurrence: None)
  Receive Date: 20240808
  Receipt Date: 20240808
  Transmission Date: 20241016
  Serious: Yes (Hospitalization)
  Sender: ASTRAZENECA
  Company Number: 2022A364877

PATIENT
  Age: 27646 Day
  Sex: Female

DRUGS (1)
  1. CALQUENCE [Suspect]
     Active Substance: ACALABRUTINIB
     Indication: Chronic lymphocytic leukaemia
     Route: 048

REACTIONS (2)
  - Blood sodium decreased [Unknown]
  - Hypotension [Unknown]

NARRATIVE: CASE EVENT DATE: 20220909
